FAERS Safety Report 22972104 (Version 2)
Quarter: 2023Q4

REPORT INFORMATION
  Report Type: Spontaneous
  Country: IL (occurrence: IL)
  Receive Date: 20230922
  Receipt Date: 20231027
  Transmission Date: 20240109
  Serious: Yes (Hospitalization, Other)
  Sender: FDA-Public Use
  Company Number: IL-TEVA-2023-IL-2927038

PATIENT
  Age: 74 Year
  Sex: Male
  Weight: 76 kg

DRUGS (19)
  1. DOXORUBICIN HYDROCHLORIDE [Suspect]
     Active Substance: DOXORUBICIN HYDROCHLORIDE
     Indication: Diffuse large B-cell lymphoma
     Route: 042
     Dates: start: 20230802, end: 20230802
  2. CYCLOPHOSPHAMIDE [Suspect]
     Active Substance: CYCLOPHOSPHAMIDE
     Indication: Diffuse large B-cell lymphoma
     Route: 042
     Dates: start: 20230802, end: 20230802
  3. CYCLOPHOSPHAMIDE [Suspect]
     Active Substance: CYCLOPHOSPHAMIDE
     Route: 042
     Dates: start: 20230903
  4. RITUXIMAB [Suspect]
     Active Substance: RITUXIMAB
     Indication: Diffuse large B-cell lymphoma
     Route: 042
     Dates: start: 20230802, end: 20230802
  5. RITUXIMAB [Suspect]
     Active Substance: RITUXIMAB
     Route: 042
     Dates: start: 20230903
  6. VINCRISTINE SULFATE [Suspect]
     Active Substance: VINCRISTINE SULFATE
     Indication: Diffuse large B-cell lymphoma
     Route: 042
     Dates: start: 20230802, end: 20230802
  7. VINCRISTINE SULFATE [Suspect]
     Active Substance: VINCRISTINE SULFATE
     Route: 042
     Dates: start: 20230903
  8. PREDNISONE ACETATE [Suspect]
     Active Substance: PREDNISONE ACETATE
     Indication: Diffuse large B-cell lymphoma
     Dosage: DAY 1-5 OF EACH 21 DAY CYCLE EVERY 1 DAYS.
     Route: 048
     Dates: start: 20230802, end: 20230806
  9. PREDNISONE ACETATE [Suspect]
     Active Substance: PREDNISONE ACETATE
     Dosage: DAY 1-5 OF EACH 21 DAY CYCLE EVERY 1 DAYS.
     Route: 048
     Dates: start: 20230903
  10. MICROPIRIN 100 [Concomitant]
     Indication: Cardiovascular event prophylaxis
     Route: 065
     Dates: start: 20221225
  11. CADEX [Concomitant]
     Indication: Product used for unknown indication
     Route: 065
  12. AMLOW 10 [Concomitant]
     Indication: Hypertension
     Route: 065
     Dates: start: 20230516
  13. SOLIFENACIN TRIMA 10 [Concomitant]
     Indication: Product used for unknown indication
     Route: 065
     Dates: start: 20230308
  14. FULPHILA [Concomitant]
     Active Substance: PEGFILGRASTIM-JMDB
     Indication: Product used for unknown indication
     Route: 065
     Dates: start: 20230723, end: 20230723
  15. ALFUZOSIN [Concomitant]
     Active Substance: ALFUZOSIN
     Indication: Benign prostatic hyperplasia
     Dates: start: 20230308
  16. CHARCOAL [Concomitant]
     Active Substance: ACTIVATED CHARCOAL
     Indication: Prophylaxis
     Dates: start: 20230730
  17. ZALDIAR [Concomitant]
     Active Substance: ACETAMINOPHEN\TRAMADOL HYDROCHLORIDE
     Indication: Cancer pain
     Dates: start: 20230716
  18. AKYNZEO [Concomitant]
     Indication: Prophylaxis of nausea and vomiting
     Dates: start: 20230723
  19. AKYNZEO [Concomitant]
     Indication: Chemotherapy

REACTIONS (2)
  - Sepsis [Not Recovered/Not Resolved]
  - Device related infection [Unknown]

NARRATIVE: CASE EVENT DATE: 20230821
